FAERS Safety Report 4968239-4 (Version None)
Quarter: 2006Q2

REPORT INFORMATION
  Report Type: 
  Country: None (occurrence: None)
  Receive Date: 20060410
  Receipt Date: 20060107
  Transmission Date: 20061013
  Serious: Yes (Other)
  Sender: FDA-Public Use
  Company Number: US-GLAXOSMITHKLINE-A0588329A

PATIENT
  Age: 58 Year
  Sex: Female
  Weight: 56.8 kg

DRUGS (1)
  1. BC [Suspect]
     Indication: HEADACHE
     Route: 048

REACTIONS (2)
  - DEMENTIA [None]
  - THINKING ABNORMAL [None]
